FAERS Safety Report 25457936 (Version 1)
Quarter: 2025Q2

REPORT INFORMATION
  Report Type: Report from Study
  Country: CA (occurrence: CA)
  Receive Date: 20250620
  Receipt Date: 20250620
  Transmission Date: 20250716
  Serious: Yes (Other)
  Sender: ABBVIE
  Company Number: CA-ABBVIE-6329234

PATIENT
  Sex: Female

DRUGS (1)
  1. HUMIRA [Suspect]
     Active Substance: ADALIMUMAB
     Indication: Crohn^s disease
     Route: 058

REACTIONS (8)
  - Ileostomy [Unknown]
  - Abdominal pain upper [Unknown]
  - Influenza like illness [Recovered/Resolved]
  - Viral infection [Recovered/Resolved]
  - Injection site pain [Unknown]
  - Nausea [Unknown]
  - Feeding disorder [Recovered/Resolved]
  - Rectal discharge [Unknown]

NARRATIVE: CASE EVENT DATE: 20250501
